FAERS Safety Report 10016716 (Version 1)
Quarter: 2014Q1

REPORT INFORMATION
  Report Type: Spontaneous
  Country: US (occurrence: US)
  Receive Date: 20140318
  Receipt Date: 20140318
  Transmission Date: 20141002
  Serious: Yes (Other)
  Sender: FDA-Public Use
  Company Number: PHHY2014US030036

PATIENT
  Age: 9 Year
  Sex: Female

DRUGS (2)
  1. DEXAMETHASONE [Suspect]
     Indication: ASTROCYTOMA, LOW GRADE
  2. RADIATION THERAPY [Suspect]
     Indication: ASTROCYTOMA, LOW GRADE

REACTIONS (3)
  - Hypertrophy [Recovering/Resolving]
  - Radiation underdose [Unknown]
  - Oedema [Recovering/Resolving]
